FAERS Safety Report 15525070 (Version 2)
Quarter: 2018Q4

REPORT INFORMATION
  Report Type: Report from Study
  Country: KR (occurrence: KR)
  Receive Date: 20181019
  Receipt Date: 20181031
  Transmission Date: 20190205
  Serious: Yes (Hospitalization)
  Sender: FDA-Public Use
  Company Number: KR-009507513-1804KOR007072

PATIENT
  Age: 50 Year
  Sex: Male
  Weight: 74.9 kg

DRUGS (8)
  1. MK-4280 [Suspect]
     Active Substance: INVESTIGATIONAL PRODUCT
     Dosage: 200 MG OR 700 MG, Q3W
     Route: 042
     Dates: start: 20180129
  2. PEMBROLIZUMAB. [Suspect]
     Active Substance: PEMBROLIZUMAB
     Indication: GASTRIC CANCER
     Dosage: 200 MG, Q3W
     Route: 042
     Dates: start: 20171127, end: 20171218
  3. TRENTAL [Concomitant]
     Active Substance: PENTOXIFYLLINE
     Indication: HYPERTENSION
     Dosage: 400 MG, BID
     Route: 048
     Dates: start: 20171213
  4. MK-4280 [Suspect]
     Active Substance: INVESTIGATIONAL PRODUCT
     Indication: GASTRIC CANCER
     Dosage: 200 MG OR 700 MG, Q3W
     Route: 042
     Dates: start: 20171127, end: 20171218
  5. MINERALS (UNSPECIFIED) (+) VITAMINS (UNSPECIFIED) [Concomitant]
     Active Substance: MINERALS\VITAMINS
     Indication: SUPPORTIVE CARE
     Dosage: 1 TABLET, QD
     Route: 048
     Dates: start: 20161004
  6. PEMBROLIZUMAB. [Suspect]
     Active Substance: PEMBROLIZUMAB
     Dosage: 200 MG, Q3W
     Route: 042
     Dates: start: 20180108, end: 20180108
  7. PEMBROLIZUMAB. [Suspect]
     Active Substance: PEMBROLIZUMAB
     Dosage: 200 MG, Q3W
     Route: 042
     Dates: start: 20180129
  8. MK-4280 [Suspect]
     Active Substance: INVESTIGATIONAL PRODUCT
     Dosage: 200 MG OR 700 MG, Q3W
     Route: 042
     Dates: start: 20180108, end: 20180108

REACTIONS (1)
  - Dermatitis [Recovered/Resolved]

NARRATIVE: CASE EVENT DATE: 20180114
